FAERS Safety Report 13926456 (Version 4)
Quarter: 2017Q4

REPORT INFORMATION
  Report Type: Spontaneous
  Country: US (occurrence: US)
  Receive Date: 20170831
  Receipt Date: 20171121
  Transmission Date: 20180320
  Serious: No
  Sender: FDA-Public Use
  Company Number: US-BAYER-2017-164286

PATIENT
  Sex: Female

DRUGS (23)
  1. STIVARGA [Suspect]
     Active Substance: REGORAFENIB
     Indication: RENAL CANCER
     Dosage: DAILY DOSE 80 MG FOR 3 WEEKS
     Route: 048
  2. LINAGLIPTIN [Concomitant]
     Active Substance: LINAGLIPTIN
  3. LEVOTHYROXINE SODIUM. [Concomitant]
     Active Substance: LEVOTHYROXINE SODIUM
  4. FEMARA [Concomitant]
     Active Substance: LETROZOLE
  5. TYLENOL [Concomitant]
     Active Substance: ACETAMINOPHEN
  6. ZOFRAN [Concomitant]
     Active Substance: ONDANSETRON HYDROCHLORIDE
  7. STIVARGA [Suspect]
     Active Substance: REGORAFENIB
     Indication: RENAL CANCER
     Dosage: DAILY DOSE 160 MG
     Route: 048
     Dates: start: 20160128
  8. PROCHLORPERAZINE MALEATE. [Concomitant]
     Active Substance: PROCHLORPERAZINE MALEATE
  9. POTASSIUM CHLORIDE. [Concomitant]
     Active Substance: POTASSIUM CHLORIDE
  10. LOSARTAN POTASSIUM. [Concomitant]
     Active Substance: LOSARTAN POTASSIUM
  11. LIPITOR [Concomitant]
     Active Substance: ATORVASTATIN CALCIUM
  12. LEVAQUIN [Concomitant]
     Active Substance: LEVOFLOXACIN
  13. KLOR-CON M20 [Concomitant]
     Active Substance: POTASSIUM CHLORIDE
  14. AMLODIPINE BESYLATE W/BENAZEPRIL HYDROCHLOR. [Concomitant]
     Active Substance: AMLODIPINE BESYLATE\BENAZEPRIL HYDROCHLORIDE
  15. LETROZOLE. [Concomitant]
     Active Substance: LETROZOLE
  16. CALCIUM W/VITAMIN D NOS [Concomitant]
     Active Substance: CALCIUM\VITAMIN D
  17. MELOXICAM. [Concomitant]
     Active Substance: MELOXICAM
  18. LEVOFLOXACIN. [Concomitant]
     Active Substance: LEVOFLOXACIN
  19. INSULIN GLARGINE [Concomitant]
     Active Substance: INSULIN GLARGINE
  20. TRAMADOL HYDROCHLORIDE. [Concomitant]
     Active Substance: TRAMADOL HYDROCHLORIDE
  21. GABAPENTIN. [Concomitant]
     Active Substance: GABAPENTIN
  22. WAL PROFEN COLD AND SINUS [Concomitant]
     Active Substance: IBUPROFEN\PSEUDOEPHEDRINE HYDROCHLORIDE
  23. COREG [Concomitant]
     Active Substance: CARVEDILOL

REACTIONS (7)
  - Off label use [None]
  - Product use in unapproved indication [None]
  - Hypertension [None]
  - Hyperkeratosis [Not Recovered/Not Resolved]
  - Blister [None]
  - Skin exfoliation [Not Recovered/Not Resolved]
  - Adverse drug reaction [None]

NARRATIVE: CASE EVENT DATE: 2017
